FAERS Safety Report 7934923-3 (Version None)
Quarter: 2011Q4

REPORT INFORMATION
  Report Type: 
  Country: None (occurrence: None)
  Receive Date: 20111122
  Receipt Date: 20110831
  Transmission Date: 20120403
  Serious: No
  Sender: FDA-Public Use
  Company Number: US-MYLANLABS-2011S1018391

PATIENT
  Age: 70 Year
  Sex: Female

DRUGS (3)
  1. RED YEAST RICE [Suspect]
     Indication: BLOOD CHOLESTEROL
     Route: 048
     Dates: start: 20100101
  2. LANSOPRAZOLE [Suspect]
     Route: 048
     Dates: start: 20110501, end: 20110825
  3. LANSOPRAZOLE [Suspect]
     Indication: GASTROOESOPHAGEAL REFLUX DISEASE
     Route: 048
     Dates: start: 20100101, end: 20110501

REACTIONS (3)
  - BLOOD CALCIUM INCREASED [None]
  - ASTHENIA [None]
  - BLOOD CHOLESTEROL INCREASED [None]
